FAERS Safety Report 7844142-7 (Version None)
Quarter: 2011Q4

REPORT INFORMATION
  Report Type: 
  Country: None (occurrence: None)
  Receive Date: 20111025
  Receipt Date: 20111017
  Transmission Date: 20120403
  Serious: Yes (Other)
  Sender: FDA-Public Use
  Company Number: US-AMGEN-USASP2011053844

PATIENT
  Age: 61 Year
  Sex: Male
  Weight: 94.331 kg

DRUGS (3)
  1. ANTIHYPERTENSIVES [Concomitant]
     Dosage: UNK
  2. PROCRIT [Suspect]
     Indication: ANAEMIA
     Dosage: UNK
     Route: 058
     Dates: start: 20080101
  3. ABIRATERONE ACETATE [Concomitant]
     Indication: PROSTATE CANCER
     Dosage: 1250 MG, UNK
     Route: 048

REACTIONS (2)
  - PROSTATIC SPECIFIC ANTIGEN INCREASED [None]
  - PROSTATE CANCER [None]
